FAERS Safety Report 21212104 (Version 1)
Quarter: 2022Q3

REPORT INFORMATION
  Report Type: Spontaneous
  Country: US (occurrence: US)
  Receive Date: 20220815
  Receipt Date: 20220815
  Transmission Date: 20221027
  Serious: No
  Sender: FDA-Public Use
  Company Number: US-PFIZER INC-202201049786

PATIENT
  Age: 69 Year
  Sex: Female

DRUGS (2)
  1. PAXLOVID [Suspect]
     Active Substance: NIRMATRELVIR\RITONAVIR
     Indication: COVID-19 treatment
     Dosage: UNK
     Dates: start: 20220807
  2. PAXLOVID [Suspect]
     Active Substance: NIRMATRELVIR\RITONAVIR
     Dosage: 3 DF, 3X/DAY
     Dates: start: 20220807

REACTIONS (5)
  - Extra dose administered [Unknown]
  - Tremor [Unknown]
  - Feeling abnormal [Unknown]
  - Decreased appetite [Unknown]
  - Dysstasia [Unknown]

NARRATIVE: CASE EVENT DATE: 20220801
